FAERS Safety Report 10737797 (Version 3)
Quarter: 2015Q2

REPORT INFORMATION
  Report Type: Spontaneous
  Country: US (occurrence: US)
  Receive Date: 20150126
  Receipt Date: 20150415
  Transmission Date: 20150821
  Serious: Yes (Other)
  Sender: FDA-Public Use
  Company Number: US-CELGENEUS-USA-2014121557

PATIENT
  Age: 83 Year
  Sex: Male

DRUGS (10)
  1. REVLIMID [Suspect]
     Active Substance: LENALIDOMIDE
     Indication: PLASMA CELL MYELOMA
     Dosage: 25 MILLIGRAM
     Route: 048
     Dates: start: 20141008, end: 20141204
  2. VELCADE [Concomitant]
     Active Substance: BORTEZOMIB
     Route: 041
     Dates: start: 20141022, end: 20141110
  3. VELCADE [Concomitant]
     Active Substance: BORTEZOMIB
     Route: 041
     Dates: start: 20141117, end: 20141124
  4. ZOFRAN [Concomitant]
     Active Substance: ONDANSETRON HYDROCHLORIDE
     Route: 041
     Dates: start: 20141008, end: 20141015
  5. ZOFRAN [Concomitant]
     Active Substance: ONDANSETRON HYDROCHLORIDE
     Route: 041
     Dates: start: 20141022, end: 20141110
  6. VELCADE [Concomitant]
     Active Substance: BORTEZOMIB
     Route: 041
     Dates: start: 20141208
  7. ZOFRAN [Concomitant]
     Active Substance: ONDANSETRON HYDROCHLORIDE
     Route: 041
     Dates: start: 20141208
  8. ACYCLOVIR. [Concomitant]
     Active Substance: ACYCLOVIR
     Indication: DRUG ERUPTION
     Dosage: 400 MILLIGRAM
     Route: 048
     Dates: start: 20141109, end: 20141113
  9. ZOFRAN [Concomitant]
     Active Substance: ONDANSETRON HYDROCHLORIDE
     Route: 041
     Dates: start: 20141117, end: 20141124
  10. VELCADE [Concomitant]
     Active Substance: BORTEZOMIB
     Route: 041
     Dates: start: 20141008, end: 20141015

REACTIONS (1)
  - Rash [Recovered/Resolved]

NARRATIVE: CASE EVENT DATE: 20141111
